FAERS Safety Report 4546151-2 (Version None)
Quarter: 2005Q1

REPORT INFORMATION
  Report Type: 
  Country: None (occurrence: None)
  Receive Date: 20050105
  Receipt Date: 20050105
  Transmission Date: 20050727
  Serious: Yes (Hospitalization)
  Sender: FDA-Public Use
  Company Number: None

PATIENT
  Age: 18 Year
  Sex: Male
  Weight: 45 kg

DRUGS (1)
  1. INFLIXIMAB [Suspect]
     Indication: CROHN'S DISEASE
     Dosage: X1 INTRAVENOUS
     Route: 042
     Dates: start: 20041110, end: 20041110

REACTIONS (4)
  - ABSCESS [None]
  - BACK PAIN [None]
  - EXTRADURAL ABSCESS [None]
  - MUSCLE ABSCESS [None]
